FAERS Safety Report 8232332-3 (Version None)
Quarter: 2012Q1

REPORT INFORMATION
  Report Type: 
  Country: None (occurrence: None)
  Receive Date: 20120323
  Receipt Date: 20120315
  Transmission Date: 20120608
  Serious: Yes (Hospitalization)
  Sender: FDA-Public Use
  Company Number: US-GLAXOSMITHKLINE-A0932358A

PATIENT
  Age: 69 Year
  Sex: Male

DRUGS (6)
  1. GLUCOTROL [Concomitant]
  2. AVANDIA [Suspect]
     Indication: DIABETES MELLITUS
     Dosage: 8MG PER DAY
     Route: 048
     Dates: start: 20020116, end: 20070919
  3. NEURONTIN [Concomitant]
  4. HYDROCHLOROTHIAZIDE [Concomitant]
  5. GLUCOPHAGE [Concomitant]
  6. ACCUPRIL [Concomitant]

REACTIONS (3)
  - PAIN IN EXTREMITY [None]
  - CARDIAC FAILURE CONGESTIVE [None]
  - CORONARY ARTERY DISEASE [None]
